FAERS Safety Report 14609687 (Version 1)
Quarter: 2018Q1

REPORT INFORMATION
  Report Type: Spontaneous
  Country: US (occurrence: US)
  Receive Date: 20180307
  Receipt Date: 20180307
  Transmission Date: 20180509
  Serious: Yes (Hospitalization, Other)
  Sender: FDA-Public Use
  Company Number: US-WEST-WARD PHARMACEUTICALS CORP.-US-H14001-17-01404

PATIENT
  Age: 4 Year
  Sex: Male
  Weight: 16.9 kg

DRUGS (2)
  1. GLYCOPYRROLATE INJECTION [Suspect]
     Active Substance: GLYCOPYRROLATE
     Indication: PROPHYLAXIS
     Route: 042
     Dates: start: 20170426, end: 20170426
  2. ANESTHETIC [Concomitant]
     Active Substance: BENZOCAINE\LIDOCAINE HYDROCHLORIDE
     Indication: SURGERY
     Route: 065
     Dates: start: 20170426, end: 20170426

REACTIONS (2)
  - Tachycardia [Recovered/Resolved]
  - Hypertension [Recovered/Resolved]

NARRATIVE: CASE EVENT DATE: 20170426
